FAERS Safety Report 7672526-9 (Version None)
Quarter: 2011Q3

REPORT INFORMATION
  Report Type: 
  Country: None (occurrence: None)
  Receive Date: 20110809
  Receipt Date: 20110728
  Transmission Date: 20111222
  Serious: Yes (Life-Threatening, Hospitalization, Other)
  Sender: FDA-Public Use
  Company Number: GB-PFIZER INC-2011172868

PATIENT
  Age: 91 Year
  Sex: Female
  Weight: 60 kg

DRUGS (5)
  1. RAMIPRIL [Suspect]
     Indication: CARDIAC FAILURE CONGESTIVE
     Dosage: 10 MG, 1X/DAY
     Route: 048
  2. BENDROFLUAZIDE [Interacting]
     Indication: CARDIAC FAILURE CONGESTIVE
     Dosage: 2.5 MG, 1X/DAY
     Route: 048
  3. WARFARIN SODIUM [Interacting]
     Indication: ATRIAL FIBRILLATION
     Route: 048
  4. TRIMETHOPRIM [Interacting]
     Indication: URINARY TRACT INFECTION
     Dosage: 200 MG, 2X/DAY
     Route: 048
     Dates: start: 20101229, end: 20110101
  5. CARVEDILOL [Interacting]
     Indication: CARDIAC FAILURE CONGESTIVE
     Dosage: 3.75 MG, UNK
     Route: 048

REACTIONS (8)
  - DRUG INTERACTION [None]
  - BLOOD CORTISOL INCREASED [None]
  - HYPONATRAEMIA [None]
  - BLOOD CREATININE INCREASED [None]
  - BLOOD OSMOLARITY DECREASED [None]
  - BLOOD UREA DECREASED [None]
  - CONFUSIONAL STATE [None]
  - BLOOD POTASSIUM DECREASED [None]
